FAERS Safety Report 18231879 (Version 1)
Quarter: 2020Q3

REPORT INFORMATION
  Report Type: Spontaneous
  Country: US (occurrence: US)
  Receive Date: 20200904
  Receipt Date: 20200904
  Transmission Date: 20201103
  Serious: Yes (Hospitalization, Other)
  Sender: FDA-Public Use
  Company Number: US-GLENMARK PHARMACEUTICALS-2020GMK049448

PATIENT
  Age: 35 Year
  Sex: Male

DRUGS (2)
  1. FLUCONAZOLE. [Suspect]
     Active Substance: FLUCONAZOLE
     Indication: COCCIDIOIDOMYCOSIS
     Dosage: 400 MILLIGRAM, QD
     Route: 048
  2. VORICONAZOLE. [Suspect]
     Active Substance: VORICONAZOLE
     Indication: DISSEMINATED COCCIDIOIDOMYCOSIS
     Dosage: UNK
     Route: 048

REACTIONS (9)
  - Medication error [Unknown]
  - Disseminated coccidioidomycosis [Recovered/Resolved]
  - Disease progression [Recovered/Resolved]
  - Septic shock [Recovered/Resolved]
  - Physical deconditioning [Recovered/Resolved]
  - Respiratory failure [Recovered/Resolved]
  - Drug effective for unapproved indication [Unknown]
  - Acute respiratory distress syndrome [Recovered/Resolved]
  - Respiratory syncytial virus infection [Recovered/Resolved]
